FAERS Safety Report 6123839-3 (Version None)
Quarter: 2009Q1

REPORT INFORMATION
  Report Type: 
  Country: None (occurrence: None)
  Receive Date: 20090319
  Receipt Date: 20090313
  Transmission Date: 20090719
  Serious: Yes (Death, Life-Threatening)
  Sender: FDA-Public Use
  Company Number: PH-CELGENEUS-THAPH200700201

PATIENT

DRUGS (4)
  1. THALIDOMIDE [Suspect]
     Indication: MULTIPLE MYELOMA
     Route: 048
     Dates: start: 20060623
  2. ATORVASTATIN [Concomitant]
     Route: 065
  3. LOSARTAN POTASSIUM HYDRCHLOROTHIAZIDE [Concomitant]
     Indication: HYPERTENSION
     Route: 065
  4. VERAPAMIL [Concomitant]
     Indication: HYPERTENSION
     Route: 065

REACTIONS (3)
  - CARDIO-RESPIRATORY ARREST [None]
  - METABOLIC ACIDOSIS [None]
  - PNEUMONIA [None]
